FAERS Safety Report 17333526 (Version 1)
Quarter: 2020Q1

REPORT INFORMATION
  Report Type: Spontaneous
  Country: FR (occurrence: FR)
  Receive Date: 20200128
  Receipt Date: 20200128
  Transmission Date: 20200409
  Serious: Yes (Hospitalization)
  Sender: FDA-Public Use
  Company Number: FR-NAPPMUNDI-GBR-2020-0074625

PATIENT
  Age: 86 Year
  Sex: Female

DRUGS (5)
  1. OXYNORM [Suspect]
     Active Substance: OXYCODONE HYDROCHLORIDE
     Indication: PAIN
     Dosage: 2 DF, DAILY
     Route: 048
     Dates: end: 20190628
  2. TIAPRIDE [Suspect]
     Active Substance: TIAPRIDE
     Indication: AGGRESSION
     Dosage: 1 DF, DAILY
     Route: 048
     Dates: start: 20190621
  3. OXYCONTIN [Suspect]
     Active Substance: OXYCODONE HYDROCHLORIDE
     Indication: PAIN
     Dosage: 2 DF, DAILY
     Route: 048
     Dates: end: 20190628
  4. LYRICA [Suspect]
     Active Substance: PREGABALIN
     Indication: PAIN
     Dosage: 2 DF, DAILY (NON RESEIGNEE)
     Route: 048
     Dates: end: 20190628
  5. ZOPICLONE [Suspect]
     Active Substance: ZOPICLONE
     Indication: AGGRESSION
     Dosage: 0.5 DF, DAILY
     Route: 048
     Dates: start: 20190621

REACTIONS (3)
  - Adult failure to thrive [Recovering/Resolving]
  - Behaviour disorder [Recovering/Resolving]
  - Gait disturbance [Recovering/Resolving]

NARRATIVE: CASE EVENT DATE: 20190628
